FAERS Safety Report 12985861 (Version 2)
Quarter: 2017Q1

REPORT INFORMATION
  Report Type: Spontaneous
  Country: US (occurrence: US)
  Receive Date: 20161130
  Receipt Date: 20170102
  Transmission Date: 20170428
  Serious: No
  Sender: FDA-Public Use
  Company Number: US-009507513-1611USA006301

PATIENT
  Sex: Male

DRUGS (3)
  1. OMEPRAZOLE. [Concomitant]
     Active Substance: OMEPRAZOLE
     Dosage: UNK
  2. VALSARTAN. [Concomitant]
     Active Substance: VALSARTAN
     Dosage: UNK
  3. ZOCOR [Suspect]
     Active Substance: SIMVASTATIN
     Indication: LIPIDS ABNORMAL
     Dosage: 20 MG, UNK

REACTIONS (9)
  - Personality change [Recovering/Resolving]
  - Affect lability [Recovering/Resolving]
  - Cognitive disorder [Recovering/Resolving]
  - Transient global amnesia [Recovering/Resolving]
  - Irritability [Recovering/Resolving]
  - Dizziness [Recovering/Resolving]
  - Mood altered [Recovering/Resolving]
  - Anger [Recovering/Resolving]
  - Rash [Recovering/Resolving]
